FAERS Safety Report 4839451-X (Version None)
Quarter: 2005Q4

REPORT INFORMATION
  Report Type: 
  Country: None (occurrence: None)
  Receive Date: 20051128
  Receipt Date: 20051128
  Transmission Date: 20060501
  Serious: Yes (Other)
  Sender: FDA-Public Use
  Company Number: None

PATIENT
  Age: 62 Year
  Sex: Female
  Weight: 90.7194 kg

DRUGS (1)
  1. AMBIEN [Suspect]
     Indication: SLEEP DISORDER
     Dosage: 1 TABLET HS   DAILY  PO
     Route: 048
     Dates: start: 20010301, end: 20050707

REACTIONS (4)
  - AMNESIA [None]
  - INCORRECT DRUG ADMINISTRATION DURATION [None]
  - TOOTH DISORDER [None]
  - TOOTH EXTRACTION [None]
